FAERS Safety Report 5417565-3 (Version None)
Quarter: 2007Q3

REPORT INFORMATION
  Report Type: 
  Country: None (occurrence: None)
  Receive Date: 20070718
  Receipt Date: 20060710
  Transmission Date: 20080115
  Serious: Yes (Other)
  Sender: FDA-Public Use
  Company Number: 2005124438

PATIENT
  Age: 59 Year
  Sex: Female
  Weight: 66.2252 kg

DRUGS (7)
  1. CELEBREX [Suspect]
     Indication: ARTHRITIS
     Dosage: 100 MG (100 MG, 1 IN 1 D);
     Dates: start: 20010118
  2. LIPITOR [Concomitant]
  3. LISINOPRIL [Concomitant]
  4. GLUCOTROL XL [Concomitant]
  5. NEXIUM [Concomitant]
  6. QUININE SULFATE [Concomitant]
  7. DILTIAZEM [Concomitant]

REACTIONS (2)
  - ASTHENIA [None]
  - MYOCARDIAL INFARCTION [None]
